FAERS Safety Report 21112221 (Version 1)
Quarter: 2022Q3

REPORT INFORMATION
  Report Type: Spontaneous
  Country: US (occurrence: None)
  Receive Date: 20220721
  Receipt Date: 20220721
  Transmission Date: 20221026
  Serious: Yes (Hospitalization)
  Sender: FDA-Public Use
  Company Number: None

PATIENT
  Age: 59 Year
  Sex: Male
  Weight: 86 kg

DRUGS (1)
  1. BACITRACIN\NEOMYCIN\POLYMYXIN [Suspect]
     Active Substance: BACITRACIN\NEOMYCIN\POLYMYXIN
     Indication: Pain
     Dosage: OTHER QUANTITY : SMALL AMOUNT GM;?FREQUENCY : AS NEEDED;?
     Route: 061
     Dates: start: 20220707, end: 20220713

REACTIONS (4)
  - Rash [None]
  - Urticaria [None]
  - Pruritus [None]
  - Periorbital cellulitis [None]

NARRATIVE: CASE EVENT DATE: 20220713
